FAERS Safety Report 9019836 (Version 1)
Quarter: 2013Q1

REPORT INFORMATION
  Report Type: Spontaneous
  Country: US (occurrence: US)
  Receive Date: 20130118
  Receipt Date: 20130118
  Transmission Date: 20140127
  Serious: Yes (Death, Hospitalization)
  Sender: FDA-Public Use
  Company Number: US-JNJFOC-20130106349

PATIENT
  Age: 35 Year
  Sex: Female

DRUGS (7)
  1. TOPIRAMATE [Suspect]
     Indication: SUICIDE ATTEMPT
     Route: 048
  2. ACETAMINOPHEN\HYDROCODONE [Suspect]
     Indication: SUICIDE ATTEMPT
     Route: 048
  3. PROMETHAZINE [Suspect]
     Indication: SUICIDE ATTEMPT
     Route: 048
  4. HYDROXYZINE [Suspect]
     Indication: SUICIDE ATTEMPT
     Route: 048
  5. UNKNOWN MEDICATION [Suspect]
     Indication: SUICIDE ATTEMPT
     Route: 048
  6. MEPROBAMATE [Suspect]
     Indication: SUICIDE ATTEMPT
     Route: 048
  7. VENLAFAXINE [Suspect]
     Indication: SUICIDE ATTEMPT
     Route: 048

REACTIONS (1)
  - Toxicity to various agents [Fatal]
